FAERS Safety Report 4276693-9 (Version None)
Quarter: 2004Q1

REPORT INFORMATION
  Report Type: 
  Country: None (occurrence: None)
  Receive Date: 20040120
  Receipt Date: 20040109
  Transmission Date: 20041129
  Serious: Yes (Hospitalization)
  Sender: FDA-Public Use
  Company Number: 2003-11-0255

PATIENT
  Age: 28 Year
  Sex: Male
  Weight: 91 kg

DRUGS (7)
  1. REBETOL [Suspect]
     Indication: HEPATITIS C
     Dosage: 800 MG QD ORAL
     Route: 048
     Dates: start: 20031003
  2. INTRON A [Suspect]
     Indication: HEPATITIS C
     Dosage: 6 MU QD-TIW* INTRAMUSCUL
     Route: 030
     Dates: start: 20031003
  3. LOXOPROFEN SODIUM [Concomitant]
  4. TEPRENONE [Concomitant]
  5. BIFIDOBACTERIUM BIFIDUM [Concomitant]
  6. INTRON A [Suspect]
     Indication: HEPATITIS C
     Dosage: 6 MU QD INTRAMUSCULAR; 6 MU TIW INTRAMUSCULAR
     Route: 030
     Dates: start: 20031003
  7. INTRON A [Suspect]
     Indication: HEPATITIS C
     Dosage: 6 MU QD INTRAMUSCULAR; 6 MU TIW INTRAMUSCULAR
     Route: 030
     Dates: start: 20031020

REACTIONS (2)
  - ABDOMINAL PAIN [None]
  - DIARRHOEA [None]
